FAERS Safety Report 8257959-4 (Version None)
Quarter: 2012Q1

REPORT INFORMATION
  Report Type: 
  Country: None (occurrence: None)
  Receive Date: 20111211
  Receipt Date: 20111031
  Transmission Date: 20120608
  Serious: No
  Sender: FDA-Public Use
  Company Number: 201109039

PATIENT
  Sex: Male

DRUGS (5)
  1. XIAFLEX (CLOSTRIDIAL COLLAGENASE) [Suspect]
     Indication: DUPUYTREN'S CONTRACTURE
     Dosage: 0.58 MG,1 IN 1 D, INTRALESIONAL
     Route: 026
     Dates: start: 20110912, end: 20110912
  2. LISINOPRIL [Concomitant]
  3. ACETAMINOPHEN AND CODEINE (CODEINE) [Concomitant]
  4. HYDROCHLOROTHIAZIDE [Concomitant]
  5. AMLODIPINE [Concomitant]

REACTIONS (2)
  - AXILLARY PAIN [None]
  - BLOOD BLISTER [None]
